FAERS Safety Report 6313186-9 (Version None)
Quarter: 2009Q3

REPORT INFORMATION
  Report Type: 
  Country: None (occurrence: None)
  Receive Date: 20090814
  Receipt Date: 20090729
  Transmission Date: 20100115
  Serious: Yes (Death)
  Sender: FDA-Public Use
  Company Number: 002415

PATIENT
  Age: 81 Year
  Sex: Male
  Weight: 48.3 kg

DRUGS (1)
  1. MACUGEN [Suspect]
     Indication: MACULAR DEGENERATION
     Dosage: 0.3MG
     Dates: start: 20090428, end: 20090428

REACTIONS (1)
  - DEATH [None]
